FAERS Safety Report 15467433 (Version 3)
Quarter: 2022Q2

REPORT INFORMATION
  Report Type: Other
  Country: US (occurrence: None)
  Receive Date: 20181005
  Receipt Date: 20220516
  Transmission Date: 20220720
  Serious: Yes (Hospitalization, Other)
  Sender: FDA-Public Use
  Company Number: US-ROCHE-2193544

PATIENT
  Age: 63 Year
  Sex: Female
  Weight: 72.186 kg

DRUGS (1)
  1. ACTEMRA [Suspect]
     Active Substance: TOCILIZUMAB
     Indication: Rheumatoid arthritis
     Dosage: ONGOING: UNKNOWN
     Route: 058

REACTIONS (10)
  - Illness [Unknown]
  - Bronchitis [Unknown]
  - Vomiting [Unknown]
  - Hyperhidrosis [Unknown]
  - Feeling hot [Unknown]
  - Pneumonia [Unknown]
  - Bronchitis [Unknown]
  - Ear infection [Unknown]
  - Arthralgia [Not Recovered/Not Resolved]
  - Illness [Unknown]

NARRATIVE: CASE EVENT DATE: 20180801
